FAERS Safety Report 11401833 (Version 1)
Quarter: 2015Q3

REPORT INFORMATION
  Report Type: Spontaneous
  Country: US (occurrence: None)
  Receive Date: 20150820
  Receipt Date: 20150820
  Transmission Date: 20151125
  Serious: No
  Sender: FDA-Public Use
  Company Number: None

PATIENT
  Age: 59 Year
  Sex: Male
  Weight: 66 kg

DRUGS (4)
  1. TRAZODONE [Concomitant]
     Active Substance: TRAZODONE HYDROCHLORIDE
  2. IBUPROFEN. [Concomitant]
     Active Substance: IBUPROFEN
  3. ZOLPIDEM [Suspect]
     Active Substance: ZOLPIDEM\ZOLPIDEM TARTRATE
     Indication: PRODUCT USED FOR UNKNOWN INDICATION
     Dosage: 1 PILL QHS/BEDTIME RECTAL
     Route: 054
     Dates: start: 20150803
  4. ZOVIRAX [Concomitant]
     Active Substance: ACYCLOVIR

REACTIONS (3)
  - Laceration [None]
  - Somnambulism [None]
  - Accident [None]

NARRATIVE: CASE EVENT DATE: 20150817
